FAERS Safety Report 5382861-5 (Version None)
Quarter: 2007Q3

REPORT INFORMATION
  Report Type: 
  Country: None (occurrence: None)
  Receive Date: 20070702
  Receipt Date: 20070425
  Transmission Date: 20080115
  Serious: No
  Sender: FDA-Public Use
  Company Number: 2007PV032836

PATIENT
  Age: 44 Year
  Sex: Female
  Weight: 139.7079 kg

DRUGS (1)
  1. SYMLIN [Suspect]
     Indication: TYPE 2 DIABETES MELLITUS
     Dosage: SC
     Route: 058

REACTIONS (2)
  - FEELING ABNORMAL [None]
  - STOMACH DISCOMFORT [None]
